FAERS Safety Report 13392115 (Version 1)
Quarter: 2017Q1

REPORT INFORMATION
  Report Type: Spontaneous
  Country: US (occurrence: US)
  Receive Date: 20170331
  Receipt Date: 20170331
  Transmission Date: 20170429
  Serious: No
  Sender: FDA-Public Use
  Company Number: US-MYLANLABS-2016M1023312

PATIENT
  Sex: Male

DRUGS (3)
  1. FENTANYL TRANSDERMAL SYSTEM [Suspect]
     Active Substance: FENTANYL
     Indication: PAIN
     Dosage: 75 ?G, QH, CHANGED Q72H
     Route: 062
     Dates: start: 201601
  2. FENTANYL ACTAVIS /00174601/ [Suspect]
     Active Substance: FENTANYL
     Indication: PAIN
     Dosage: 100 ?G, QH, CHANGED Q72H
     Route: 062
     Dates: start: 201601
  3. MORPHINE [Concomitant]
     Active Substance: MORPHINE
     Indication: PAIN
     Dosage: UNK

REACTIONS (2)
  - Pain [Not Recovered/Not Resolved]
  - Product adhesion issue [None]
